FAERS Safety Report 16570166 (Version 1)
Quarter: 2019Q3

REPORT INFORMATION
  Report Type: Spontaneous
  Country: DE (occurrence: DE)
  Receive Date: 20190715
  Receipt Date: 20190715
  Transmission Date: 20191004
  Serious: Yes (Hospitalization)
  Sender: FDA-Public Use
  Company Number: DE-TEVA-2019-DE-1076489

PATIENT
  Age: 79 Year
  Sex: Male

DRUGS (13)
  1. CARVEDILOL. [Suspect]
     Active Substance: CARVEDILOL
     Dosage: 25 MG, 0.5-0-0.5-0
  2. METAMIZOL [Concomitant]
     Active Substance: METAMIZOLE SODIUM
     Dosage: 500 MG, NEED
  3. ALLOPURINOL. [Concomitant]
     Active Substance: ALLOPURINOL
     Dosage: 300 MG, 0-0-1-0
  4. TORASEMID [Concomitant]
     Active Substance: TORSEMIDE
     Dosage: 5 MG, 1-0-0-0
  5. METOPROLOL. [Suspect]
     Active Substance: METOPROLOL
     Dosage: 23.75 MG, 1-0-1-0
  6. GODAMED [Concomitant]
     Active Substance: ASPIRIN
     Dosage: 100 MG, 0-1-0-0
  7. PANTOPRAZOL [Concomitant]
     Active Substance: PANTOPRAZOLE SODIUM
     Dosage: 20 MG, 0-0-1-0
  8. PLAVIX [Concomitant]
     Active Substance: CLOPIDOGREL BISULFATE
     Dosage: 75 MG, 1-0-0-0
  9. XIPAMID [Concomitant]
     Active Substance: XIPAMIDE
     Dosage: 19 MG, 1-0-0-0
  10. MIRTAZAPIN [Concomitant]
     Active Substance: MIRTAZAPINE
     Dosage: 30 MG, 0-0-0.5-0
  11. LEVOTHYROXIN-NATRIUM [Concomitant]
     Active Substance: LEVOTHYROXINE SODIUM
     Dosage: 150 ?G, 1-0-0-0
  12. CANDESARTAN. [Concomitant]
     Active Substance: CANDESARTAN
     Dosage: 8 MG, 1-0-0-0
  13. SIMVASTATIN. [Concomitant]
     Active Substance: SIMVASTATIN
     Dosage: 20 MG, 0-0-1-0

REACTIONS (3)
  - Skin ulcer [Unknown]
  - Product prescribing error [Unknown]
  - Peripheral arterial occlusive disease [Unknown]
